FAERS Safety Report 7576615-9 (Version None)
Quarter: 2011Q2

REPORT INFORMATION
  Report Type: 
  Country: None (occurrence: None)
  Receive Date: 20110628
  Receipt Date: 20110620
  Transmission Date: 20111010
  Serious: Yes (Hospitalization)
  Sender: FDA-Public Use
  Company Number: US-ELI_LILLY_AND_COMPANY-US200906005662

PATIENT
  Sex: Female

DRUGS (27)
  1. NITROGLYCERIN [Concomitant]
     Dosage: 0.2 MG, DAILY (1/D)
  2. METFORMIN HCL [Concomitant]
     Dosage: 1000 MG, 2/D
  3. TEMAZEPAM [Concomitant]
     Dosage: 30 MG, DAILY (1/D)
  4. CARAFATE [Concomitant]
     Dosage: 1 G, 4/D
     Dates: start: 20080801
  5. NITROGLYCERIN [Concomitant]
     Dosage: UNK, AS NEEDED
  6. ATENOLOL [Concomitant]
     Dosage: 50 MG, DAILY (1/D)
  7. BUSPAR [Concomitant]
     Dosage: 15 MG, 3/D
  8. LEXAPRO [Concomitant]
     Dosage: 20 MG, DAILY (1/D)
  9. BYETTA [Suspect]
     Dosage: 5 UG, 2/D
     Dates: start: 20080219, end: 20080101
  10. SPIRONOLACTONE [Concomitant]
     Dosage: UNK, DAILY (1/D)
  11. SYNTHROID [Concomitant]
     Dosage: 224 UG, DAILY (1/D)
  12. TOPAMAX [Concomitant]
     Dosage: 75 MG, DAILY (1/D)
  13. METOCLOPRAMIDE [Concomitant]
     Dosage: 10 MG, 4/D
  14. ALBUTEROL SULFATE AUTOHALER [Concomitant]
     Dosage: UNK, AS NEEDED
  15. OXYBUTYNIN [Concomitant]
     Dosage: 5 MG, DAILY (1/D)
  16. LASIX [Concomitant]
  17. RISPERDAL [Concomitant]
     Dosage: UNK, UNKNOWN
  18. HYDROXYZINE [Concomitant]
     Dosage: 50 MG, DAILY (1/D)
  19. PHENERGAN HCL [Concomitant]
     Dosage: 25 MG, DAILY (1/D)
  20. FENTANYL [Concomitant]
     Dosage: 50 UG, OTHER
  21. MEPROBAMATE [Concomitant]
     Dosage: 10 MG, 4/D
  22. CARDIZEM [Concomitant]
     Dosage: 360 MG, DAILY (1/D)
  23. TYLENOL                                 /SCH/ [Concomitant]
     Dosage: UNK, UNKNOWN
  24. ZOCOR [Concomitant]
     Dosage: 80 MG, DAILY (1/D)
  25. MIRTAZAPINE [Concomitant]
     Dosage: 30 MG, DAILY (1/D)
  26. VICODIN [Concomitant]
     Dosage: UNK, AS NEEDED
  27. ZOFRAN [Concomitant]
     Indication: NAUSEA
     Dosage: UNK, AS NEEDED
     Route: 042
     Dates: start: 20080801

REACTIONS (6)
  - PANCREATITIS [None]
  - DIABETIC GASTROPARESIS [None]
  - INFECTION [None]
  - PANCREATITIS CHRONIC [None]
  - RENAL INJURY [None]
  - GASTRITIS [None]
